FAERS Safety Report 9215759 (Version 1)
Quarter: 2013Q2

REPORT INFORMATION
  Report Type: Spontaneous
  Country: US (occurrence: US)
  Receive Date: 20130408
  Receipt Date: 20130408
  Transmission Date: 20140414
  Serious: No
  Sender: FDA-Public Use
  Company Number: US-009507513-1304USA001778

PATIENT
  Sex: Female

DRUGS (4)
  1. JANUVIA [Suspect]
     Dosage: 100 MG, QD
     Route: 048
     Dates: start: 201004
  2. METFORMIN TEVA [Concomitant]
  3. GLIPIZIDE [Concomitant]
  4. ACTOS [Concomitant]

REACTIONS (3)
  - Drug dose omission [Unknown]
  - Diarrhoea [Unknown]
  - Liver function test abnormal [Unknown]
